FAERS Safety Report 6565793-6 (Version None)
Quarter: 2010Q1

REPORT INFORMATION
  Report Type: 
  Country: None (occurrence: None)
  Receive Date: 20100201
  Receipt Date: 20090922
  Transmission Date: 20100710
  Serious: No
  Sender: FDA-Public Use
  Company Number: US-ABBOTT-09P-163-0599345-00

PATIENT
  Sex: Male

DRUGS (2)
  1. LUPRON DEPOT [Suspect]
     Indication: PROSTATE CANCER
     Route: 050
     Dates: start: 20070101, end: 20080101
  2. DIOVAN [Concomitant]
     Indication: HYPERTENSION

REACTIONS (5)
  - FATIGUE [None]
  - GAIT DISTURBANCE [None]
  - LIVER DISORDER [None]
  - MENTAL IMPAIRMENT [None]
  - PROSTATIC SPECIFIC ANTIGEN INCREASED [None]
